FAERS Safety Report 11256423 (Version 2)
Quarter: 2015Q4

REPORT INFORMATION
  Report Type: Spontaneous
  Country: DE (occurrence: DE)
  Receive Date: 20150709
  Receipt Date: 20151007
  Transmission Date: 20160304
  Serious: Yes (Other)
  Sender: FDA-Public Use
  Company Number: DE-GILEAD-2015-0162763

PATIENT
  Age: 76 Year
  Sex: Male

DRUGS (8)
  1. LOSARTAN. [Concomitant]
     Active Substance: LOSARTAN
  2. BISOPROLOL [Concomitant]
     Active Substance: BISOPROLOL
  3. FUROSEMIDE. [Concomitant]
     Active Substance: FUROSEMIDE
  4. RANOLAZINE [Suspect]
     Active Substance: RANOLAZINE
     Indication: ANGINA PECTORIS
     Dosage: 750 MG, BID
     Route: 048
     Dates: start: 2014, end: 201506
  5. ISOSORBIDE DINITRATE. [Concomitant]
     Active Substance: ISOSORBIDE DINITRATE
  6. CORVATON [Concomitant]
     Active Substance: MOLSIDOMINE
  7. ACETYLSALICYLIC ACID [Concomitant]
     Active Substance: ASPIRIN
  8. CARBIMAZOLE [Suspect]
     Active Substance: CARBIMAZOLE
     Indication: HYPERTHYROIDISM
     Dosage: UNK
     Route: 065
     Dates: end: 201506

REACTIONS (3)
  - Apathy [Recovered/Resolved]
  - Somnolence [Recovered/Resolved]
  - Hallucination, visual [Recovered/Resolved]

NARRATIVE: CASE EVENT DATE: 2015
